FAERS Safety Report 5134790-X (Version None)
Quarter: 2006Q4

REPORT INFORMATION
  Report Type: 
  Country: None (occurrence: None)
  Receive Date: 20061025
  Receipt Date: 20061019
  Transmission Date: 20070319
  Serious: Yes (Hospitalization)
  Sender: FDA-Public Use
  Company Number: AU-MERCK-0610USA11999

PATIENT
  Age: 58 Year
  Sex: Male

DRUGS (8)
  1. DECADRON [Suspect]
     Indication: NECK PAIN
     Route: 048
  2. DECADRON [Suspect]
     Route: 048
  3. DOXEPIN HYDROCHLORIDE [Concomitant]
     Indication: ANXIETY
     Route: 065
  4. DOXEPIN HYDROCHLORIDE [Concomitant]
     Route: 065
  5. DOXEPIN HYDROCHLORIDE [Concomitant]
     Indication: DEPRESSION
     Route: 065
  6. DOXEPIN HYDROCHLORIDE [Concomitant]
     Route: 065
  7. SINEMET [Concomitant]
     Route: 048
  8. DIAZEPAM [Concomitant]
     Route: 065

REACTIONS (1)
  - NEUROLEPTIC MALIGNANT SYNDROME [None]
